FAERS Safety Report 10192473 (Version 1)
Quarter: 2014Q2

REPORT INFORMATION
  Report Type: Spontaneous
  Country: US (occurrence: US)
  Receive Date: 20140523
  Receipt Date: 20140523
  Transmission Date: 20141212
  Serious: No
  Sender: FDA-Public Use
  Company Number: US-BAUSCH-BL-2013-001924

PATIENT
  Sex: Female

DRUGS (1)
  1. IPRATROPIUM BROMIDE NASAL SOLUTION 0.03% [Suspect]
     Indication: UPPER-AIRWAY COUGH SYNDROME
     Dosage: TWO SPRAYS IN EACH NOSTRIL TWICE DAILY
     Route: 045
     Dates: start: 20130327, end: 20130330

REACTIONS (3)
  - Nasal discomfort [Recovering/Resolving]
  - Pharyngeal oedema [Recovering/Resolving]
  - Off label use [Recovering/Resolving]
